FAERS Safety Report 7860549-6 (Version None)
Quarter: 2011Q4

REPORT INFORMATION
  Report Type: 
  Country: None (occurrence: None)
  Receive Date: 20111027
  Receipt Date: 20111025
  Transmission Date: 20120403
  Serious: No
  Sender: FDA-Public Use
  Company Number: US-PFIZER INC-2011258549

PATIENT
  Age: 70 Year
  Sex: Female
  Weight: 65.76 kg

DRUGS (1)
  1. IBUPROFEN (ADVIL) [Suspect]
     Indication: MYALGIA
     Dosage: 200 MG, AS NEEDED
     Route: 048
     Dates: start: 20111014

REACTIONS (4)
  - MYALGIA [None]
  - RASH [None]
  - ERYTHEMA [None]
  - JOINT SWELLING [None]
